FAERS Safety Report 21462407 (Version 1)
Quarter: 2022Q4

REPORT INFORMATION
  Report Type: Spontaneous
  Country: US (occurrence: None)
  Receive Date: 20221014
  Receipt Date: 20221014
  Transmission Date: 20230112
  Serious: Yes (Hospitalization)
  Sender: FDA-Public Use
  Company Number: None

PATIENT
  Sex: Male
  Weight: 17.5 kg

DRUGS (7)
  1. LEUKINE [Suspect]
     Active Substance: SARGRAMOSTIM
  2. DINUTUXIMAB [Suspect]
     Active Substance: DINUTUXIMAB
     Dosage: OTHER QUANTITY : 12.25MG;?
  3. CETIRIZINE [Concomitant]
     Active Substance: CETIRIZINE HYDROCHLORIDE
  4. KETARNINE [Concomitant]
  5. MORPHINE [Concomitant]
     Active Substance: MORPHINE
  6. ZOFRAN [Concomitant]
     Active Substance: ONDANSETRON HYDROCHLORIDE
  7. ACETAMINOPHEN [Concomitant]
     Active Substance: ACETAMINOPHEN

REACTIONS (6)
  - Pyrexia [None]
  - Neuralgia [None]
  - Capillary leak syndrome [None]
  - Hypotension [None]
  - Hypoxia [None]
  - Hypervolaemia [None]

NARRATIVE: CASE EVENT DATE: 20221010
